FAERS Safety Report 8675766 (Version 2)
Quarter: 2012Q4

REPORT INFORMATION
  Report Type: 
  Country: PA (occurrence: PA)
  Receive Date: 20120720
  Receipt Date: 20121115
  Transmission Date: 20130627
  Serious: Yes (Other)
  Sender: FDA-Public Use
  Company Number: PA-ROCHE-1089629

PATIENT
  Sex: Male
  Weight: 59 kg

DRUGS (2)
  1. AVASTIN [Suspect]
     Indication: LUNG NEOPLASM MALIGNANT
     Route: 042
     Dates: start: 20120711, end: 20120711
  2. ACETAMINOPHEN [Concomitant]
     Indication: PREMEDICATION
     Route: 048
     Dates: start: 20120711, end: 20120711

REACTIONS (4)
  - Loss of consciousness [Unknown]
  - Hypotension [Unknown]
  - Hyperhidrosis [Unknown]
  - Bladder sphincter atony [Unknown]
